FAERS Safety Report 5614722-8 (Version None)
Quarter: 2008Q1

REPORT INFORMATION
  Report Type: 
  Country: None (occurrence: None)
  Receive Date: 20080131
  Receipt Date: 20080122
  Transmission Date: 20080703
  Serious: Yes (Hospitalization)
  Sender: FDA-Public Use
  Company Number: 2008-00386

PATIENT
  Age: 49 Year
  Sex: Male

DRUGS (6)
  1. PREDNISONE TAB [Suspect]
     Indication: PROPHYLAXIS AGAINST TRANSPLANT REJECTION
     Dates: start: 20040101, end: 20060101
  2. TACROLIMUS [Suspect]
     Indication: PROPHYLAXIS AGAINST TRANSPLANT REJECTION
     Dates: start: 20040101, end: 20060101
  3. MYCOPHENOLATE MOFETIL [Suspect]
     Indication: PROPHYLAXIS AGAINST TRANSPLANT REJECTION
     Dosage: TID,
     Dates: start: 20040101, end: 20060101
  4. AMPHOTERICIN B [Suspect]
     Indication: FUNGAEMIA
     Dosage: 1 MG/KG, DAILY,
     Dates: start: 20060101
  5. 5-FLUOROCYTOSINE() [Suspect]
     Indication: FUNGAEMIA
     Dates: start: 20060101
  6. FLUCONAZOLE [Suspect]
     Indication: FUNGAEMIA
     Dosage: 400 MG,
     Dates: start: 20060101, end: 20060101

REACTIONS (3)
  - CELLULITIS [None]
  - CRYPTOCOCCOSIS [None]
  - IMMUNE RECONSTITUTION SYNDROME [None]
